FAERS Safety Report 8249948-0 (Version None)
Quarter: 2012Q2

REPORT INFORMATION
  Report Type: 
  Country: None (occurrence: None)
  Receive Date: 20120402
  Receipt Date: 20120323
  Transmission Date: 20120825
  Serious: Yes (Hospitalization)
  Sender: FDA-Public Use
  Company Number: US-JNJFOC-20120313022

PATIENT
  Sex: Female
  Weight: 86.18 kg

DRUGS (2)
  1. INVEGA SUSTENNA [Suspect]
     Route: 030
     Dates: start: 20120131, end: 20120131
  2. INVEGA SUSTENNA [Suspect]
     Indication: SCHIZOPHRENIA
     Route: 030
     Dates: start: 20120123, end: 20120123

REACTIONS (2)
  - TORTICOLLIS [None]
  - FEAR [None]
